APPROVED DRUG PRODUCT: PARAGARD T 380A
Active Ingredient: COPPER
Strength: 309MG/COPPER
Dosage Form/Route: SYSTEM;INTRAUTERINE
Application: N018680 | Product #001
Applicant: COOPERSURGICAL INC
Approved: Nov 15, 1984 | RLD: Yes | RS: Yes | Type: RX

EXCLUSIVITY:
Code: D-193 | Date: Jun 28, 2027